FAERS Safety Report 5487730-8 (Version None)
Quarter: 2007Q4

REPORT INFORMATION
  Report Type: 
  Country: None (occurrence: None)
  Receive Date: 20071001
  Receipt Date: 20060807
  Transmission Date: 20080405
  Serious: Yes (Death)
  Sender: FDA-Public Use
  Company Number: BDI-008490

PATIENT
  Age: 76 Year
  Sex: Female

DRUGS (2)
  1. RENO-60 [Suspect]
     Indication: ARTHRALGIA
     Dosage: IT
     Route: 037
     Dates: start: 20060426, end: 20060426
  2. RENO-60 [Suspect]
     Indication: SPINAL MYELOGRAM
     Dosage: IT
     Route: 037
     Dates: start: 20060426, end: 20060426

REACTIONS (4)
  - CONVULSION [None]
  - INCORRECT ROUTE OF DRUG ADMINISTRATION [None]
  - MONOPLEGIA [None]
  - MUSCLE SPASMS [None]
